FAERS Safety Report 11649522 (Version 2)
Quarter: 2015Q4

REPORT INFORMATION
  Report Type: Spontaneous
  Country: US (occurrence: US)
  Receive Date: 20151021
  Receipt Date: 20151109
  Transmission Date: 20160304
  Serious: Yes (Hospitalization)
  Sender: FDA-Public Use
  Company Number: US-LPDUSPRD-20150806

PATIENT
  Age: 37 Year
  Sex: Female

DRUGS (1)
  1. LIDOCAINE HCL [Suspect]
     Active Substance: LIDOCAINE HYDROCHLORIDE
     Dosage: 1 LITER OF LIDOCAINE 1%
     Route: 042

REACTIONS (10)
  - Aggression [Recovered/Resolved]
  - Apparent death [None]
  - Delusion [Recovered/Resolved]
  - Oedema [None]
  - Peripheral coldness [None]
  - Toxicity to various agents [Recovered/Resolved]
  - Perseveration [None]
  - Agitation [Recovered/Resolved]
  - Restlessness [Recovered/Resolved]
  - Pallor [None]
